FAERS Safety Report 9262074 (Version 3)
Quarter: 2014Q1

REPORT INFORMATION
  Report Type: Report from Study
  Country: CA (occurrence: CA)
  Receive Date: 20130430
  Receipt Date: 20140312
  Transmission Date: 20141002
  Serious: Yes (Death, Hospitalization, Other)
  Sender: FDA-Public Use
  Company Number: CA-ROCHE-1198984

PATIENT
  Sex: Male
  Weight: 100.7 kg

DRUGS (17)
  1. RITUXAN [Suspect]
     Indication: RHEUMATOID ARTHRITIS
     Route: 042
     Dates: start: 20120626, end: 20120712
  2. MORPHINE [Suspect]
     Indication: PRODUCT USED FOR UNKNOWN INDICATION
     Route: 065
  3. COUMADIN [Suspect]
     Indication: PRODUCT USED FOR UNKNOWN INDICATION
     Route: 065
  4. DIPHENHYDRAMINE HCL [Concomitant]
     Route: 048
     Dates: start: 20120626, end: 20120712
  5. ACETAMINOPHEN [Concomitant]
     Route: 048
     Dates: start: 20120626, end: 20120712
  6. METHYLPREDNISOLONE [Concomitant]
     Route: 042
     Dates: start: 20120626, end: 20120712
  7. PREDNISONE [Concomitant]
  8. PLAQUENIL [Concomitant]
  9. FUROSEMIDE [Concomitant]
  10. RAMIPRIL [Concomitant]
  11. WARFARIN [Concomitant]
  12. ELTROXIN [Concomitant]
  13. DIGOXIN [Concomitant]
  14. ACETYLSALICYLIC ACID [Concomitant]
     Route: 065
  15. RABEPRAZOLE [Concomitant]
  16. CALCIUM CARBONATE [Concomitant]
  17. HYDROMORPHONE [Concomitant]
     Route: 065

REACTIONS (14)
  - Renal cancer [Fatal]
  - Cerebrovascular accident [Fatal]
  - Pulmonary embolism [Fatal]
  - Renal failure chronic [Unknown]
  - Haematoma [Unknown]
  - Delirium [Unknown]
  - Renal disorder [Not Recovered/Not Resolved]
  - Oropharyngeal pain [Not Recovered/Not Resolved]
  - Rhinorrhoea [Not Recovered/Not Resolved]
  - Nasopharyngitis [Unknown]
  - Stasis dermatitis [Unknown]
  - Skin ulcer [Unknown]
  - Pain [Unknown]
  - Fall [Unknown]
